FAERS Safety Report 17686007 (Version 1)
Quarter: 2020Q2

REPORT INFORMATION
  Report Type: Spontaneous
  Country: US (occurrence: US)
  Receive Date: 20200417
  Receipt Date: 20200417
  Transmission Date: 20200714
  Serious: No
  Sender: FDA-Public Use
  Company Number: None

PATIENT

DRUGS (2)
  1. JUUL/MI-POD/DEVICE /NICOTINE [Suspect]
     Active Substance: DEVICE\NICOTINE
     Route: 055
  2. ROVE, DANK VAPES, AND CHRONIC BRANDS OF THC INFUSED E-LIQUIDS [Suspect]
     Active Substance: .DELTA.8-TETRAHYDROCANNABINOL\DEVICE\HERBALS\NICOTINE

REACTIONS (1)
  - Respiratory disorder [None]
